FAERS Safety Report 20351469 (Version 1)
Quarter: 2022Q1

REPORT INFORMATION
  Report Type: Spontaneous
  Country: US (occurrence: US)
  Receive Date: 20220119
  Receipt Date: 20220119
  Transmission Date: 20220423
  Serious: No
  Sender: FDA-Public Use
  Company Number: US-BEH-2022140822

PATIENT
  Sex: Female

DRUGS (1)
  1. HIZENTRA [Suspect]
     Active Substance: HUMAN IMMUNOGLOBULIN G
     Dosage: UNK
     Route: 065

REACTIONS (16)
  - Erythema [Recovered/Resolved]
  - Recalled product administered [Recovered/Resolved]
  - Swelling [Recovered/Resolved]
  - Recalled product administered [Recovered/Resolved]
  - Urticaria [Recovered/Resolved]
  - Recalled product administered [Recovered/Resolved]
  - Feeling hot [Recovered/Resolved]
  - Recalled product administered [Recovered/Resolved]
  - Erythema [Recovered/Resolved]
  - Swelling [Recovered/Resolved]
  - Urticaria [Recovered/Resolved]
  - Feeling hot [Recovered/Resolved]
  - Recalled product administered [Recovered/Resolved]
  - Recalled product administered [Recovered/Resolved]
  - Recalled product administered [Recovered/Resolved]
  - Recalled product administered [Recovered/Resolved]
